FAERS Safety Report 5280850-2 (Version None)
Quarter: 2007Q1

REPORT INFORMATION
  Report Type: 
  Country: None (occurrence: None)
  Receive Date: 20070329
  Receipt Date: 20070320
  Transmission Date: 20070707
  Serious: Yes (Life-Threatening)
  Sender: FDA-Public Use
  Company Number: IT-PFIZER INC-2007022561

PATIENT
  Sex: Female

DRUGS (6)
  1. DIFLUCAN [Suspect]
     Indication: FUNGAL INFECTION
     Dosage: DAILY DOSE:400MG-FREQ:EVERY DAY
     Route: 042
     Dates: start: 20070305, end: 20070310
  2. GANCICLOVIR [Concomitant]
     Route: 042
     Dates: start: 20070228, end: 20070310
  3. RITONAVIR [Concomitant]
     Route: 048
  4. ATAZANAVIR SULFATE [Concomitant]
     Route: 048
  5. WARFARIN SODIUM [Concomitant]
     Dates: start: 20070305, end: 20070310
  6. TRUVADA [Concomitant]
     Route: 048

REACTIONS (3)
  - CARDIAC ARREST [None]
  - ELECTROCARDIOGRAM QT PROLONGED [None]
  - VENTRICULAR ARRHYTHMIA [None]
